FAERS Safety Report 5595898-8 (Version None)
Quarter: 2008Q1

REPORT INFORMATION
  Report Type: 
  Country: None (occurrence: None)
  Receive Date: 20080118
  Receipt Date: 20080109
  Transmission Date: 20080703
  Serious: Yes (Other)
  Sender: FDA-Public Use
  Company Number: PHHO2005CA07612

PATIENT
  Sex: Female

DRUGS (3)
  1. SANDOSTATIN LAR [Suspect]
     Indication: CARCINOID TUMOUR
     Dosage: 20 MG, QMO
     Route: 030
     Dates: start: 20050518
  2. COVERSYL                                /BEL/ [Concomitant]
     Indication: HYPERTENSION
     Dosage: 8 MG PER DAY
     Route: 048
  3. SANDOSTATIN [Suspect]
     Indication: CARCINOID SYNDROME
     Route: 058
     Dates: start: 20050503

REACTIONS (6)
  - ABDOMINAL PAIN [None]
  - HAEMATOCHEZIA [None]
  - HEADACHE [None]
  - HYPERTENSION [None]
  - INJECTION SITE PAIN [None]
  - VEIN DISORDER [None]
